FAERS Safety Report 13013934 (Version 1)
Quarter: 2016Q4

REPORT INFORMATION
  Report Type: Report from Study
  Country: GB (occurrence: GB)
  Receive Date: 20161209
  Receipt Date: 20161209
  Transmission Date: 20170207
  Serious: Yes (Hospitalization)
  Sender: FDA-Public Use
  Company Number: GB-PFIZER INC-2016567185

PATIENT
  Age: 81 Year
  Sex: Male
  Weight: 72 kg

DRUGS (4)
  1. BLINDED THERAPY [Suspect]
     Active Substance: INVESTIGATIONAL PRODUCT
     Indication: PROSTATE CANCER
     Dosage: BLINDED INFORMATION WITHELD
     Dates: start: 20161020
  2. SIMVASTATIN. [Concomitant]
     Active Substance: SIMVASTATIN
     Dosage: UNK
     Dates: start: 1991
  3. DOXAZOSIN [Concomitant]
     Active Substance: DOXAZOSIN\DOXAZOSIN MESYLATE
     Dosage: UNK
     Dates: start: 1971
  4. DOCETAXEL. [Suspect]
     Active Substance: DOCETAXEL
     Indication: PROSTATE CANCER
     Dosage: 140 MG, CYCLIC (EVERY 21 DAYS)
     Route: 042
     Dates: start: 20161020, end: 20161020

REACTIONS (2)
  - Diarrhoea [Recovered/Resolved]
  - Neutropenic sepsis [Recovered/Resolved]

NARRATIVE: CASE EVENT DATE: 20161024
